FAERS Safety Report 12636516 (Version 2)
Quarter: 2016Q3

REPORT INFORMATION
  Report Type: Spontaneous
  Country: US (occurrence: US)
  Receive Date: 20160809
  Receipt Date: 20160824
  Transmission Date: 20161109
  Serious: No
  Sender: FDA-Public Use
  Company Number: US-BAYER-2016-146581

PATIENT
  Age: 36 Year
  Sex: Female
  Weight: 62.59 kg

DRUGS (1)
  1. MIRALAX [Suspect]
     Active Substance: POLYETHYLENE GLYCOL 3350
     Indication: PREOPERATIVE CARE
     Dosage: 14 DF, ONCE
     Dates: start: 20160627, end: 20160627

REACTIONS (3)
  - Off label use [None]
  - Drug ineffective [None]
  - Product use issue [None]

NARRATIVE: CASE EVENT DATE: 201606
